FAERS Safety Report 14545035 (Version 1)
Quarter: 2018Q1

REPORT INFORMATION
  Report Type: Spontaneous
  Country: US (occurrence: US)
  Receive Date: 20180217
  Receipt Date: 20180217
  Transmission Date: 20180509
  Serious: No
  Sender: FDA-Public Use
  Company Number: US-JNJFOC-20180203931

PATIENT
  Sex: Female
  Weight: 63.5 kg

DRUGS (4)
  1. TOPAMAX [Suspect]
     Active Substance: TOPIRAMATE
     Indication: GENERALISED TONIC-CLONIC SEIZURE
     Dosage: 100MG IN THE MORNING AND 200MG IN THE EVENING
     Route: 048
     Dates: start: 1999
  2. TOPAMAX [Suspect]
     Active Substance: TOPIRAMATE
     Indication: GENERALISED TONIC-CLONIC SEIZURE
     Route: 048
     Dates: start: 199908, end: 1999
  3. TOPAMAX [Suspect]
     Active Substance: TOPIRAMATE
     Indication: GENERALISED TONIC-CLONIC SEIZURE
     Route: 048
     Dates: start: 199908, end: 1999
  4. TOPAMAX [Suspect]
     Active Substance: TOPIRAMATE
     Indication: GENERALISED TONIC-CLONIC SEIZURE
     Dosage: 100MG IN THE MORNING AND 200MG IN THE EVENING
     Route: 048
     Dates: start: 1999

REACTIONS (8)
  - Fatigue [Recovered/Resolved]
  - White blood cell count decreased [Not Recovered/Not Resolved]
  - Sinus disorder [Not Recovered/Not Resolved]
  - Secretion discharge [Not Recovered/Not Resolved]
  - Osteoporosis [Unknown]
  - Dysphonia [Not Recovered/Not Resolved]
  - Treatment noncompliance [Unknown]
  - Immune system disorder [Not Recovered/Not Resolved]

NARRATIVE: CASE EVENT DATE: 2018
